FAERS Safety Report 25377941 (Version 3)
Quarter: 2025Q4

REPORT INFORMATION
  Report Type: Spontaneous
  Country: EU (occurrence: EU)
  Receive Date: 20250530
  Receipt Date: 20251013
  Transmission Date: 20260117
  Serious: Yes (Other)
  Sender: RHYTHM PHARMACEUTICALS
  Company Number: EU-PPDUS-2024RHM000424

PATIENT

DRUGS (1)
  1. IMCIVREE [Suspect]
     Active Substance: SETMELANOTIDE
     Indication: Laurence-Moon-Bardet-Biedl syndrome
     Dosage: 3 MILLIGRAM
     Dates: start: 20230901

REACTIONS (5)
  - Paralysis [Recovered/Resolved]
  - Spinal disorder [Unknown]
  - Spinal pain [Recovered/Resolved]
  - Hypoglycaemia [Unknown]
  - Hypophagia [Unknown]

NARRATIVE: CASE EVENT DATE: 20250922
